FAERS Safety Report 9597841 (Version 1)
Quarter: 2013Q4

REPORT INFORMATION
  Report Type: Spontaneous
  Country: US (occurrence: US)
  Receive Date: 20131004
  Receipt Date: 20131004
  Transmission Date: 20140711
  Serious: No
  Sender: FDA-Public Use
  Company Number: US-AMGEN-USASP2013022231

PATIENT
  Age: 63 Year
  Sex: Male

DRUGS (1)
  1. ENBREL [Suspect]
     Indication: RHEUMATOID ARTHRITIS
     Dosage: 50 MG, QWK
     Route: 058
     Dates: start: 201203

REACTIONS (6)
  - Rhinorrhoea [Unknown]
  - Dizziness [Unknown]
  - Arthralgia [Unknown]
  - Alopecia [Unknown]
  - Hypersensitivity [Unknown]
  - Nasopharyngitis [Unknown]
